FAERS Safety Report 11631544 (Version 2)
Quarter: 2015Q4

REPORT INFORMATION
  Report Type: Spontaneous
  Country: CA (occurrence: CA)
  Receive Date: 20151015
  Receipt Date: 20151019
  Transmission Date: 20160304
  Serious: Yes (Other)
  Sender: FDA-Public Use
  Company Number: CA-ROCHE-1646331

PATIENT
  Age: 75 Year
  Sex: Female

DRUGS (14)
  1. RITUXAN [Suspect]
     Active Substance: RITUXIMAB
     Indication: NON-HODGKIN^S LYMPHOMA
     Route: 065
     Dates: start: 2011
  2. ELTROXINE [Concomitant]
     Active Substance: LEVOTHYROXINE
  3. PANTOLOC [Concomitant]
     Active Substance: PANTOPRAZOLE SODIUM
  4. SERTRALINE [Concomitant]
     Active Substance: SERTRALINE HYDROCHLORIDE
  5. ONDANSETRON [Concomitant]
     Active Substance: ONDANSETRON
  6. ACIDOPHILUS [Concomitant]
     Active Substance: LACTOBACILLUS ACIDOPHILUS
     Dosage: WHEN EATING YOGOURT
     Route: 065
  7. MOGADON [Concomitant]
     Active Substance: NITRAZEPAM
  8. FUROSEMIDE. [Concomitant]
     Active Substance: FUROSEMIDE
  9. PANTOPRAZOLE [Concomitant]
     Active Substance: PANTOPRAZOLE SODIUM
  10. RAMIPRIL. [Concomitant]
     Active Substance: RAMIPRIL
  11. BISOPROLOL [Concomitant]
     Active Substance: BISOPROLOL
  12. PREDNISONE. [Concomitant]
     Active Substance: PREDNISONE
  13. ETOPOSIDE. [Concomitant]
     Active Substance: ETOPOSIDE
  14. TYLENOL [Concomitant]
     Active Substance: ACETAMINOPHEN

REACTIONS (1)
  - Femur fracture [Unknown]

NARRATIVE: CASE EVENT DATE: 201503
